FAERS Safety Report 11155814 (Version 1)
Quarter: 2015Q2

REPORT INFORMATION
  Report Type: Other
  Country: ES (occurrence: ES)
  Receive Date: 20150602
  Receipt Date: 20150602
  Transmission Date: 20150821
  Serious: Yes (Other)
  Sender: FDA-Public Use
  Company Number: ES-ACTELION-A-CH2015-118476

PATIENT
  Age: 55 Year

DRUGS (2)
  1. TRACLEER [Suspect]
     Active Substance: BOSENTAN\BOSENTAN MONOHYDRATE
     Dosage: 62.5 MG, BID
     Route: 048
     Dates: start: 201307
  2. TRACLEER [Suspect]
     Active Substance: BOSENTAN\BOSENTAN MONOHYDRATE
     Indication: THROMBOANGIITIS OBLITERANS
     Dosage: 125 MG, BID
     Route: 048

REACTIONS (1)
  - Finger amputation [Unknown]

NARRATIVE: CASE EVENT DATE: 20140115
